FAERS Safety Report 6928211-1 (Version None)
Quarter: 2010Q3

REPORT INFORMATION
  Report Type: 
  Country: None (occurrence: None)
  Receive Date: 20100817
  Receipt Date: 20100809
  Transmission Date: 20110219
  Serious: Yes (Other)
  Sender: FDA-Public Use
  Company Number: US-ROCHE-711239

PATIENT
  Sex: Male

DRUGS (2)
  1. PEGASYS [Suspect]
     Indication: HEPATITIS C
     Dosage: FORM: PRE-FILLED SYRINGE, WEEK 8 OF TREATMENT, TREATMENT SUSPENDED FOR 1 WEEK
     Route: 065
     Dates: start: 20100615
  2. RIBAVIRIN [Suspect]
     Indication: HEPATITIS C
     Dosage: DIVIDED DOSES, WEEK 8 OF TREATMENT, TREATMENT SUSPENDED FOR 1 WEEK
     Route: 065
     Dates: start: 20100615

REACTIONS (3)
  - DIZZINESS [None]
  - VIITH NERVE PARALYSIS [None]
  - WHITE BLOOD CELL COUNT DECREASED [None]
